FAERS Safety Report 6133149-6 (Version None)
Quarter: 2009Q1

REPORT INFORMATION
  Report Type: 
  Country: None (occurrence: None)
  Receive Date: 20090326
  Receipt Date: 20090316
  Transmission Date: 20090719
  Serious: Yes (Other)
  Sender: FDA-Public Use
  Company Number: SE-BAXTER-2009BH002456

PATIENT
  Age: 46 Year
  Sex: Male

DRUGS (3)
  1. GAMMAGARD LIQUID [Suspect]
     Indication: CHRONIC INFLAMMATORY DEMYELINATING POLYRADICULONEUROPATHY
     Route: 042
     Dates: start: 20081001
  2. GAMMAGARD LIQUID [Suspect]
     Route: 042
     Dates: start: 20090206, end: 20090206
  3. CYCLOPHOSPHAMIDE [Concomitant]
     Indication: NERVOUS SYSTEM DISORDER
     Dates: start: 20080101

REACTIONS (3)
  - ERYTHEMA [None]
  - PRURITUS [None]
  - URTICARIA [None]
